FAERS Safety Report 10889055 (Version 4)
Quarter: 2016Q3

REPORT INFORMATION
  Report Type: Report from Study
  Country: AR (occurrence: AR)
  Receive Date: 20150305
  Receipt Date: 20160915
  Transmission Date: 20161109
  Serious: Yes (Disabling, Other)
  Sender: FDA-Public Use
  Company Number: AR-ABBVIE-15K-007-1344032-00

PATIENT
  Sex: Female

DRUGS (1)
  1. HUMIRA [Suspect]
     Active Substance: ADALIMUMAB
     Indication: PSORIATIC ARTHROPATHY
     Route: 058
     Dates: start: 20120913

REACTIONS (11)
  - Joint stiffness [Unknown]
  - Haemarthrosis [Unknown]
  - Peripheral nerve injury [Not Recovered/Not Resolved]
  - Furuncle [Recovering/Resolving]
  - Joint injury [Unknown]
  - Psoriatic arthropathy [Recovered/Resolved]
  - Tendon rupture [Not Recovered/Not Resolved]
  - Osteoarthritis [Not Recovered/Not Resolved]
  - Accident [Unknown]
  - Joint effusion [Not Recovered/Not Resolved]
  - Fall [Unknown]

NARRATIVE: CASE EVENT DATE: 2013
